FAERS Safety Report 4730889-8 (Version None)
Quarter: 2005Q3

REPORT INFORMATION
  Report Type: 
  Country: None (occurrence: None)
  Receive Date: 20050719
  Receipt Date: 20040729
  Transmission Date: 20060218
  Serious: Yes (Other)
  Sender: FDA-Public Use
  Company Number: 202244

PATIENT
  Age: 47 Year
  Sex: Female
  Weight: 47.1741 kg

DRUGS (3)
  1. AVONEX [Suspect]
     Indication: MULTIPLE SCLEROSIS
     Dosage: 30 UG;QW;IM
     Route: 030
     Dates: start: 20031101
  2. FIORINAL W/CODEINE [Concomitant]
  3. DEPAKOTE [Concomitant]

REACTIONS (8)
  - BLOOD PRESSURE INCREASED [None]
  - BREAST MASS [None]
  - CONVULSION [None]
  - INFLUENZA LIKE ILLNESS [None]
  - INGUINAL MASS [None]
  - INSOMNIA [None]
  - MIGRAINE [None]
  - WEIGHT DECREASED [None]
